FAERS Safety Report 6963055-6 (Version None)
Quarter: 2010Q3

REPORT INFORMATION
  Report Type: 
  Country: None (occurrence: None)
  Receive Date: 20100823
  Receipt Date: 20100519
  Transmission Date: 20110219
  Serious: Yes (Other)
  Sender: FDA-Public Use
  Company Number: 012245

PATIENT
  Sex: Female

DRUGS (1)
  1. CIMZIA [Suspect]
     Dosage: (400 MG, FIRST DOSE SUBCUTANEOUS)
     Route: 058
     Dates: start: 20100430, end: 20100501

REACTIONS (2)
  - DIZZINESS [None]
  - MUSCLE SPASMS [None]
